FAERS Safety Report 7701157-7 (Version None)
Quarter: 2011Q3

REPORT INFORMATION
  Report Type: 
  Country: None (occurrence: None)
  Receive Date: 20110819
  Receipt Date: 20110819
  Transmission Date: 20111222
  Serious: No
  Sender: FDA-Public Use
  Company Number: None

PATIENT
  Sex: Female

DRUGS (1)
  1. XOLAIR [Suspect]
     Dosage: 225MG Q2W SUB-Q
     Route: 058
     Dates: start: 20100513, end: 20110818

REACTIONS (1)
  - MENSTRUATION IRREGULAR [None]
